FAERS Safety Report 23758442 (Version 2)
Quarter: 2024Q2

REPORT INFORMATION
  Report Type: Spontaneous
  Country: IT (occurrence: IT)
  Receive Date: 20240418
  Receipt Date: 20240513
  Transmission Date: 20240716
  Serious: Yes (Hospitalization)
  Sender: FDA-Public Use
  Company Number: IT-TEVA-VS-3185022

PATIENT
  Age: 50 Year
  Sex: Male

DRUGS (1)
  1. METHOTREXATE [Suspect]
     Active Substance: METHOTREXATE
     Indication: Angioimmunoblastic T-cell lymphoma
     Dosage: DOSAGE: 3.5 G/M^2 RECEIVED 3.5 G/M2
     Route: 042

REACTIONS (4)
  - Mucosal inflammation [Recovering/Resolving]
  - Balanoposthitis infective [Recovering/Resolving]
  - Pseudomonas infection [Recovering/Resolving]
  - Enterococcal infection [Recovering/Resolving]
